FAERS Safety Report 23513721 (Version 1)
Quarter: 2024Q1

REPORT INFORMATION
  Report Type: Spontaneous
  Country: US (occurrence: US)
  Receive Date: 20240212
  Receipt Date: 20240212
  Transmission Date: 20240410
  Serious: No
  Sender: FDA-Public Use
  Company Number: US-E2BLSMVVAL-SPO/USA/24/0001591

PATIENT
  Age: 1 Year
  Sex: Male

DRUGS (1)
  1. JAVYGTOR [Suspect]
     Active Substance: SAPROPTERIN DIHYDROCHLORIDE
     Indication: Phenylketonuria
     Route: 048
     Dates: start: 20240102

REACTIONS (4)
  - Respiratory syncytial virus infection [Recovered/Resolved]
  - Phenylketonuria [Recovered/Resolved]
  - Therapy interrupted [Unknown]
  - Eating disorder [Unknown]
